FAERS Safety Report 6027594-7 (Version None)
Quarter: 2009Q1

REPORT INFORMATION
  Report Type: 
  Country: None (occurrence: None)
  Receive Date: 20090105
  Receipt Date: 20081125
  Transmission Date: 20090719
  Serious: No
  Sender: FDA-Public Use
  Company Number: US-BAYER-200814589BCC

PATIENT
  Age: 48 Year
  Sex: Male
  Weight: 95 kg

DRUGS (4)
  1. ALEVE [Suspect]
     Indication: BACK PAIN
     Route: 048
  2. ALEVE [Suspect]
     Dosage: TOTAL DAILY DOSE: 440 MG  UNIT DOSE: 220 MG
     Route: 048
     Dates: start: 20081124
  3. TRICOR [Concomitant]
  4. ZETIA [Concomitant]

REACTIONS (4)
  - DIZZINESS [None]
  - NAUSEA [None]
  - RASH GENERALISED [None]
  - SWOLLEN TONGUE [None]
